FAERS Safety Report 8621716-7 (Version None)
Quarter: 2012Q3

REPORT INFORMATION
  Report Type: 
  Country: None (occurrence: None)
  Receive Date: 20120821
  Receipt Date: 20120821
  Transmission Date: 20120928
  Serious: Yes (Hospitalization)
  Sender: FDA-Public Use
  Company Number: None

PATIENT
  Weight: 61.4 kg

DRUGS (4)
  1. CARBOPLATIN [Suspect]
     Dosage: 2150 MG
     Dates: start: 20120713
  2. DOXORUBICIN HYDROCHLORIDE [Suspect]
     Dosage: 100 MG
     Dates: start: 20120809
  3. TAXOL [Suspect]
     Dosage: 1242 MG
     Dates: start: 20120803
  4. CYCLOPHOSPHAMIDE [Suspect]
     Dosage: 1000 MG
     Dates: start: 20120809

REACTIONS (2)
  - ENTEROCOLITIS [None]
  - NEUTROPENIA [None]
